FAERS Safety Report 12291712 (Version 1)
Quarter: 2016Q2

REPORT INFORMATION
  Report Type: Spontaneous
  Country: US (occurrence: US)
  Receive Date: 20160421
  Receipt Date: 20160421
  Transmission Date: 20160815
  Serious: No
  Sender: FDA-Public Use
  Company Number: US-AMGEN-USASP2016029722

PATIENT
  Age: 52 Year
  Sex: Male

DRUGS (1)
  1. REPATHA [Suspect]
     Active Substance: EVOLOCUMAB
     Indication: HYPERCHOLESTEROLAEMIA
     Dosage: 140 MG, Q2WK
     Route: 058
     Dates: start: 201601

REACTIONS (5)
  - Injury associated with device [Unknown]
  - Drug administered at inappropriate site [Unknown]
  - Underdose [Unknown]
  - Injection site induration [Unknown]
  - Injection site pain [Unknown]

NARRATIVE: CASE EVENT DATE: 20160307
